FAERS Safety Report 8824843 (Version 2)
Quarter: 2012Q4

REPORT INFORMATION
  Report Type: 
  Country: JP (occurrence: JP)
  Receive Date: 20121004
  Receipt Date: 20121017
  Transmission Date: 20130627
  Serious: Yes (Hospitalization)
  Sender: FDA-Public Use
  Company Number: JP-ASTRAZENECA-2012SE75658

PATIENT
  Age: 62 Year
  Sex: Male

DRUGS (9)
  1. MEROPEN [Suspect]
     Indication: PNEUMONIA
     Route: 042
     Dates: start: 20110803, end: 20110803
  2. MEROPEN [Suspect]
     Indication: PNEUMONIA
     Route: 042
     Dates: start: 20110804, end: 20110815
  3. CIPROXAN [Concomitant]
     Dates: start: 20110803
  4. ELASPOL [Concomitant]
     Route: 042
     Dates: start: 20110803
  5. RECOMODULIN [Concomitant]
     Dates: start: 20110803
  6. OMEPRAL [Concomitant]
     Route: 042
     Dates: start: 20110803
  7. PROPOFOL [Concomitant]
     Route: 042
     Dates: start: 20110805
  8. CATABON [Concomitant]
     Dates: start: 20110805
  9. FENTANYL [Concomitant]
     Route: 042
     Dates: start: 20110807

REACTIONS (1)
  - Pancreatitis acute [Recovering/Resolving]
